FAERS Safety Report 8439954-5 (Version None)
Quarter: 2012Q2

REPORT INFORMATION
  Report Type: 
  Country: None (occurrence: None)
  Receive Date: 20120611
  Receipt Date: 20120611
  Transmission Date: 20120825
  Serious: Yes (Life-Threatening, Hospitalization)
  Sender: FDA-Public Use
  Company Number: None

PATIENT
  Age: 60 Year
  Sex: Female
  Weight: 68.0396 kg

DRUGS (4)
  1. PEMETREXED [Concomitant]
  2. PEGFILGRASTIM 6 MG AMGEN [Suspect]
     Indication: FEBRILE NEUTROPENIA
     Dosage: 6 MG, ONCE, SQ
     Dates: start: 20120525, end: 20120525
  3. CARBOPLATIN [Concomitant]
  4. BEVACIZUMAB [Concomitant]

REACTIONS (2)
  - NEUTROPENIA [None]
  - PRODUCT QUALITY ISSUE [None]
